FAERS Safety Report 6308968-3 (Version None)
Quarter: 2009Q3

REPORT INFORMATION
  Report Type: 
  Country: None (occurrence: None)
  Receive Date: 20090813
  Receipt Date: 20090807
  Transmission Date: 20100115
  Serious: Yes (Other)
  Sender: FDA-Public Use
  Company Number: US-AMGEN-QUU359145

PATIENT
  Sex: Male

DRUGS (4)
  1. ARANESP [Suspect]
     Indication: DRUG USE FOR UNKNOWN INDICATION
  2. VITAMIN B-12 [Concomitant]
  3. ALOXI [Concomitant]
  4. FLUDARA [Concomitant]

REACTIONS (1)
  - HAEMOGLOBIN DECREASED [None]
